FAERS Safety Report 7928444-1 (Version None)
Quarter: 2011Q4

REPORT INFORMATION
  Report Type: 
  Country: None (occurrence: None)
  Receive Date: 20111118
  Receipt Date: 20111107
  Transmission Date: 20120403
  Serious: Yes (Other)
  Sender: FDA-Public Use
  Company Number: PHHY2011MX89895

PATIENT
  Sex: Male

DRUGS (4)
  1. RASILEZ [Suspect]
     Indication: HYPERTENSION
     Dosage: 1 DF, DAILY
     Dates: start: 20110401
  2. NORVASC [Concomitant]
     Indication: BLOOD PRESSURE
     Dosage: 1 DF, UNK
  3. FUROSEMIDE [Concomitant]
  4. PIOGLITAZONE [Concomitant]
     Indication: DIABETES MELLITUS
     Dosage: 1 DF, DAILY
     Dates: start: 20110201

REACTIONS (4)
  - SKIN LESION [None]
  - HERPES VIRUS INFECTION [None]
  - BURNING SENSATION [None]
  - SOMNOLENCE [None]
